FAERS Safety Report 13429063 (Version 2)
Quarter: 2017Q3

REPORT INFORMATION
  Report Type: Report from Study
  Country: US (occurrence: US)
  Receive Date: 20170411
  Receipt Date: 20170904
  Transmission Date: 20171127
  Serious: Yes (Death, Hospitalization, Other)
  Sender: FDA-Public Use
  Company Number: US-SHIRE-US201707819

PATIENT
  Age: 50 Year
  Sex: Male

DRUGS (2)
  1. GATTEX [Suspect]
     Active Substance: TEDUGLUTIDE\WATER
     Dosage: 2.45 MG, 1X/DAY:QD
     Route: 058
     Dates: start: 20170309
  2. GATTEX [Suspect]
     Active Substance: TEDUGLUTIDE\WATER
     Indication: SHORT-BOWEL SYNDROME
     Dosage: 2 ML, UNK
     Route: 065
     Dates: start: 20170309

REACTIONS (4)
  - Malaise [Recovering/Resolving]
  - Drug dose omission [Recovered/Resolved]
  - Death [Fatal]
  - Dehydration [Recovering/Resolving]

NARRATIVE: CASE EVENT DATE: 20170329
